FAERS Safety Report 7651398-2 (Version None)
Quarter: 2011Q3

REPORT INFORMATION
  Report Type: 
  Country: None (occurrence: None)
  Receive Date: 20110802
  Receipt Date: 20110722
  Transmission Date: 20111222
  Serious: Yes (Other)
  Sender: FDA-Public Use
  Company Number: PHHY2011AR65700

PATIENT
  Sex: Female

DRUGS (1)
  1. ZOLEDRONOC ACID [Suspect]
     Indication: OSTEOPOROSIS
     Dosage: 5 MG, ONE ANNUAL AMPOULE
     Route: 042
     Dates: start: 20110714

REACTIONS (10)
  - UVEITIS [None]
  - EYE SWELLING [None]
  - PHLEBITIS [None]
  - MALAISE [None]
  - EYE INFECTION [None]
  - NAUSEA [None]
  - OCULAR HYPERAEMIA [None]
  - CHILLS [None]
  - PYREXIA [None]
  - BONE PAIN [None]
